FAERS Safety Report 24949773 (Version 1)
Quarter: 2025Q1

REPORT INFORMATION
  Report Type: Spontaneous
  Country: US (occurrence: US)
  Receive Date: 20250210
  Receipt Date: 20250210
  Transmission Date: 20250409
  Serious: No
  Sender: ELI LILLY AND COMPANY
  Company Number: US-ELI_LILLY_AND_COMPANY-US202502004230

PATIENT
  Age: 65 Year

DRUGS (24)
  1. MOUNJARO [Suspect]
     Active Substance: TIRZEPATIDE
     Indication: Weight control
     Route: 058
     Dates: start: 2023
  2. MOUNJARO [Suspect]
     Active Substance: TIRZEPATIDE
     Indication: Weight control
     Route: 058
     Dates: start: 2023
  3. MOUNJARO [Suspect]
     Active Substance: TIRZEPATIDE
     Indication: Weight control
     Route: 058
     Dates: start: 2023
  4. MOUNJARO [Suspect]
     Active Substance: TIRZEPATIDE
     Indication: Weight control
     Route: 058
     Dates: start: 2023
  5. MOUNJARO [Suspect]
     Active Substance: TIRZEPATIDE
     Indication: Aortic aneurysm
  6. MOUNJARO [Suspect]
     Active Substance: TIRZEPATIDE
     Indication: Aortic aneurysm
  7. MOUNJARO [Suspect]
     Active Substance: TIRZEPATIDE
     Indication: Aortic aneurysm
  8. MOUNJARO [Suspect]
     Active Substance: TIRZEPATIDE
     Indication: Aortic aneurysm
  9. MOUNJARO [Suspect]
     Active Substance: TIRZEPATIDE
     Indication: Weight control
     Route: 058
  10. MOUNJARO [Suspect]
     Active Substance: TIRZEPATIDE
     Indication: Weight control
     Route: 058
  11. MOUNJARO [Suspect]
     Active Substance: TIRZEPATIDE
     Indication: Weight control
     Route: 058
  12. MOUNJARO [Suspect]
     Active Substance: TIRZEPATIDE
     Indication: Weight control
     Route: 058
  13. MOUNJARO [Suspect]
     Active Substance: TIRZEPATIDE
     Indication: Aortic aneurysm
  14. MOUNJARO [Suspect]
     Active Substance: TIRZEPATIDE
     Indication: Aortic aneurysm
  15. MOUNJARO [Suspect]
     Active Substance: TIRZEPATIDE
     Indication: Aortic aneurysm
  16. MOUNJARO [Suspect]
     Active Substance: TIRZEPATIDE
     Indication: Aortic aneurysm
  17. MOUNJARO [Suspect]
     Active Substance: TIRZEPATIDE
     Indication: Weight control
     Route: 058
  18. MOUNJARO [Suspect]
     Active Substance: TIRZEPATIDE
     Indication: Weight control
     Route: 058
  19. MOUNJARO [Suspect]
     Active Substance: TIRZEPATIDE
     Indication: Weight control
     Route: 058
  20. MOUNJARO [Suspect]
     Active Substance: TIRZEPATIDE
     Indication: Weight control
     Route: 058
  21. MOUNJARO [Suspect]
     Active Substance: TIRZEPATIDE
     Indication: Aortic aneurysm
  22. MOUNJARO [Suspect]
     Active Substance: TIRZEPATIDE
     Indication: Aortic aneurysm
  23. MOUNJARO [Suspect]
     Active Substance: TIRZEPATIDE
     Indication: Aortic aneurysm
  24. MOUNJARO [Suspect]
     Active Substance: TIRZEPATIDE
     Indication: Aortic aneurysm

REACTIONS (3)
  - Accidental underdose [Unknown]
  - Incorrect dose administered [Unknown]
  - Off label use [Unknown]

NARRATIVE: CASE EVENT DATE: 20240101
